FAERS Safety Report 5409232-7 (Version None)
Quarter: 2007Q3

REPORT INFORMATION
  Report Type: 
  Country: None (occurrence: None)
  Receive Date: 20070808
  Receipt Date: 20070808
  Transmission Date: 20080115
  Serious: No
  Sender: FDA-Public Use
  Company Number: None

PATIENT
  Sex: Male
  Weight: 68.4932 kg

DRUGS (2)
  1. SULAR [Suspect]
     Indication: HYPERTENSION
     Dosage: ONE TIME PO QD QD
     Route: 048
     Dates: start: 20060828, end: 20060926
  2. SULAR [Suspect]
     Indication: HYPERTENSIVE HEART DISEASE
     Dosage: ONE TIME PO QD QD
     Route: 048
     Dates: start: 20060828, end: 20060926

REACTIONS (1)
  - HYPERTENSION [None]
